FAERS Safety Report 13365353 (Version 1)
Quarter: 2017Q1

REPORT INFORMATION
  Report Type: Spontaneous
  Country: US (occurrence: US)
  Receive Date: 20170323
  Receipt Date: 20170323
  Transmission Date: 20170429
  Serious: No
  Sender: FDA-Public Use
  Company Number: US-ALLERGAN-2016-000002

PATIENT
  Sex: Female

DRUGS (1)
  1. ESTRACE [Suspect]
     Active Substance: ESTRADIOL
     Indication: MENOPAUSE
     Dosage: 0.5 MG, TWICE A WEEK
     Route: 067
     Dates: start: 201607

REACTIONS (7)
  - Vulvovaginal discomfort [Unknown]
  - Vulvovaginal pruritus [Unknown]
  - Breast swelling [Unknown]
  - Vulvovaginal burning sensation [Unknown]
  - Medication residue present [Unknown]
  - Intentional product misuse [Unknown]
  - Abdominal distension [Unknown]
